FAERS Safety Report 9162015 (Version 1)
Quarter: 2013Q1

REPORT INFORMATION
  Report Type: Spontaneous
  Country: IT (occurrence: None)
  Receive Date: 20130222
  Receipt Date: 20130222
  Transmission Date: 20140127
  Serious: Yes (Hospitalization)
  Sender: FDA-Public Use
  Company Number: SYM-2013-00744

PATIENT
  Age: 62 Year
  Sex: Male

DRUGS (7)
  1. BUPROPION HYDROCHLORIDE [Suspect]
     Indication: PRODUCT USED FOR UNKNOWN INDICATION
     Route: 048
     Dates: start: 20121019, end: 20130119
  2. GABAPENTIN (GABAPENTIN)(GABAPENTIN) [Concomitant]
  3. QUETIAPINE (QUETIAPINE)(QUETIAPINE) [Concomitant]
  4. SERTRALINE HYDROCHLORIDE(SERTRALINE HYDROCHLORIDE)(SERTRALINE HYDROCHLORIDE) [Concomitant]
  5. GEMFIBROZIL(GEMFIBROZIL)(GEMFIBROZIL) [Concomitant]
  6. OMEPRAZOLE(OMEPRAZOLE)(OMEPRAZOLE) [Concomitant]
  7. ATENOLOL (ATENOLOL)(ATENOLOL) [Concomitant]

REACTIONS (2)
  - Convulsion [None]
  - Motor dysfunction [None]
